FAERS Safety Report 4680818-0 (Version None)
Quarter: 2005Q2

REPORT INFORMATION
  Report Type: 
  Country: None (occurrence: None)
  Receive Date: 20050601
  Receipt Date: 20050513
  Transmission Date: 20051028
  Serious: Yes (Disabling)
  Sender: FDA-Public Use
  Company Number: FRWYE664713MAY05

PATIENT
  Age: 66 Year
  Sex: Male

DRUGS (3)
  1. SOPROL (BISOPROLOL, TABLET, 0) [Suspect]
     Dosage: 10 MG 1X PER 1 DAY
     Route: 048
     Dates: end: 20050215
  2. PLAVIX [Suspect]
     Dosage: 75 MG 1X PER 1 DAY
     Dates: start: 20010615
  3. PROPOLIS (PROPOLIS) [Concomitant]

REACTIONS (7)
  - ALLERGY TEST POSITIVE [None]
  - BRONCHIECTASIS [None]
  - COOMBS TEST POSITIVE [None]
  - EOSINOPHILIC PNEUMONIA [None]
  - POSITRON EMISSION TOMOGRAM ABNORMAL [None]
  - PULMONARY FIBROSIS [None]
  - PULMONARY HYPERTENSION [None]
